FAERS Safety Report 10084919 (Version 1)
Quarter: 2014Q2

REPORT INFORMATION
  Report Type: Spontaneous
  Country: TW (occurrence: TW)
  Receive Date: 20140417
  Receipt Date: 20140417
  Transmission Date: 20141212
  Serious: Yes (Hospitalization)
  Sender: FDA-Public Use
  Company Number: PHHY2014TW042254

PATIENT
  Age: 62 Year
  Sex: Male

DRUGS (1)
  1. LEUPROLIDE [Suspect]
     Indication: PROSTATE CANCER
     Dosage: 3.75 MG, UNK

REACTIONS (7)
  - Mania [Recovered/Resolved]
  - Psychotic disorder [Recovered/Resolved]
  - Euphoric mood [Recovered/Resolved]
  - Psychomotor hyperactivity [Recovered/Resolved]
  - Logorrhoea [Recovered/Resolved]
  - Somnolence [Recovered/Resolved]
  - Insomnia [Recovered/Resolved]
